FAERS Safety Report 18416183 (Version 3)
Quarter: 2022Q4

REPORT INFORMATION
  Report Type: Spontaneous
  Country: US (occurrence: US)
  Receive Date: 20201022
  Receipt Date: 20221115
  Transmission Date: 20230113
  Serious: Yes (Other)
  Sender: FDA-Public Use
  Company Number: US-PFIZER INC-2020407884

PATIENT
  Age: 29 Year
  Sex: Male

DRUGS (1)
  1. BENEFIX [Suspect]
     Active Substance: COAGULATION FACTOR IX RECOMBINANT HUMAN\ISOPROPYL ALCOHOL
     Indication: Haemorrhage
     Dosage: 8000 IU, AS NEEDED (8000 I.U. +/-10% SLOW I.V. PUSH AS NEEDED EVERY 24 HOURS)
     Route: 042

REACTIONS (1)
  - Gastrointestinal haemorrhage [Unknown]
